FAERS Safety Report 7409802-0 (Version None)
Quarter: 2011Q2

REPORT INFORMATION
  Report Type: 
  Country: None (occurrence: None)
  Receive Date: 20110412
  Receipt Date: 20110407
  Transmission Date: 20111010
  Serious: Yes (Other)
  Sender: FDA-Public Use
  Company Number: US-ABBOTT-11P-163-0707282-00

PATIENT
  Sex: Female
  Weight: 108.96 kg

DRUGS (11)
  1. HUMIRA [Suspect]
     Indication: PSORIASIS
     Dates: start: 20091001, end: 20101001
  2. HUMIRA [Suspect]
     Indication: RHEUMATOID ARTHRITIS
     Dates: start: 20110219
  3. VENLAFAXINE HCL [Concomitant]
     Indication: DEPRESSION
  4. BECTECAL [Concomitant]
     Indication: PSORIASIS
  5. HYDROCHLOROTHIAZIDE [Concomitant]
     Indication: HYPERTENSION
  6. DIOVAN [Concomitant]
     Indication: HYPERTENSION
  7. ALLEGRA [Concomitant]
     Indication: HYPERSENSITIVITY
  8. CLOBETAZOLE [Concomitant]
     Indication: PSORIASIS
  9. DOVONEX [Concomitant]
     Indication: PSORIASIS
  10. LEVOTHYROXINE [Concomitant]
     Indication: HYPOTHYROIDISM
  11. IBUPROFEN [Concomitant]
     Indication: PAIN

REACTIONS (5)
  - HEPATIC ENZYME INCREASED [None]
  - VIRAL INFECTION [None]
  - INFLAMMATORY MARKER INCREASED [None]
  - SCAR [None]
  - LUNG NEOPLASM [None]
